FAERS Safety Report 13757225 (Version 1)
Quarter: 2017Q3

REPORT INFORMATION
  Report Type: Spontaneous
  Country: US (occurrence: US)
  Receive Date: 20170714
  Receipt Date: 20170714
  Transmission Date: 20171127
  Serious: Yes (Death)
  Sender: FDA-Public Use
  Company Number: None

PATIENT
  Age: 79 Year
  Sex: Female
  Weight: 42.75 kg

DRUGS (3)
  1. FUROSEMIDE. [Concomitant]
     Active Substance: FUROSEMIDE
  2. LEVOTHYROZINE [Concomitant]
  3. TARCEVA [Suspect]
     Active Substance: ERLOTINIB HYDROCHLORIDE
     Indication: PANCREATIC CARCINOMA
     Dosage: ?          OTHER DOSE:MG;?100 MG DAILY ORAL
     Route: 048
     Dates: start: 20170413

REACTIONS (1)
  - Death [None]
